FAERS Safety Report 5647977-4 (Version None)
Quarter: 2008Q1

REPORT INFORMATION
  Report Type: 
  Country: None (occurrence: None)
  Receive Date: 20080228
  Receipt Date: 20080214
  Transmission Date: 20080703
  Serious: Yes (Other)
  Sender: FDA-Public Use
  Company Number: 1-15785212

PATIENT
  Sex: Male
  Weight: 126.1 kg

DRUGS (20)
  1. FENTANYL [Suspect]
     Indication: BACK PAIN
     Dosage: 25 MCG/HR EVERY 72 HRS, TRANSDERMAL
     Route: 062
     Dates: start: 20080125, end: 20080131
  2. LANTUS [Concomitant]
  3. HUMALOG [Concomitant]
  4. DILTIAZEM [Concomitant]
  5. METOPROLOL 50 MG [Concomitant]
  6. SYNTHROID (LEVOTHYROXINE SODIUM) 0.175 MG [Concomitant]
  7. ALEVE [Concomitant]
  8. LASIX (FUROSEMIDE) 80 MG [Concomitant]
  9. LAMOTRIGINE 150MG [Concomitant]
  10. SIMVASTATIN [Concomitant]
  11. RANITIDINE 150 MG [Concomitant]
  12. LISINOPRIL [Concomitant]
  13. XANAX (ALPRAZOLAM) 0.5MG [Concomitant]
  14. NEURONTIN [Concomitant]
  15. ALLOPURINOL [Concomitant]
  16. EFFEXOR (VENLAFAXINE HYDROCHLORIDE) 150 MG [Concomitant]
  17. PROVIGIL (MODAFINIL) 400 MG [Concomitant]
  18. CLONIDINE [Concomitant]
  19. MOXIFLOXACIN HCL [Concomitant]
  20. BYETTA (EXENATIDE INJECTION) 10 MCG [Concomitant]

REACTIONS (9)
  - ASTHENIA [None]
  - BACK PAIN [None]
  - DYSARTHRIA [None]
  - HYPERSENSITIVITY [None]
  - LETHARGY [None]
  - ORAL INTAKE REDUCED [None]
  - PYREXIA [None]
  - SOMNOLENCE [None]
  - TREMOR [None]
